FAERS Safety Report 4445677-X (Version None)
Quarter: 2004Q3

REPORT INFORMATION
  Report Type: 
  Country: None (occurrence: None)
  Receive Date: 20040902
  Receipt Date: 20040818
  Transmission Date: 20050211
  Serious: Yes (Hospitalization)
  Sender: FDA-Public Use
  Company Number: 04P-075-0271070-00

PATIENT
  Age: 35 Year
  Sex: Female
  Weight: 52.5 kg

DRUGS (12)
  1. SEVOFLURANE [Suspect]
     Indication: MAINTENANCE OF ANAESTHESIA
     Dosage: INHALATION
     Route: 055
  2. PROPOFOL [Concomitant]
  3. FENTANYL [Concomitant]
  4. ROCURONIUM [Concomitant]
  5. CEFAZOLIN [Concomitant]
  6. NITROUS OXIDE [Concomitant]
  7. OXYGEN [Concomitant]
  8. NEOSTIGMINE [Concomitant]
  9. ATROPINE [Concomitant]
  10. MORPHINE [Concomitant]
  11. ISOFLURANE [Concomitant]
  12. ALOE VERA [Suspect]
     Indication: PAIN IN EXTREMITY
     Dosage: 4 TABLET, 4 IN I D

REACTIONS (7)
  - DRUG INTERACTION [None]
  - HYPOTENSION [None]
  - OPERATIVE HAEMORRHAGE [None]
  - PLATELET COUNT DECREASED [None]
  - SURGICAL PROCEDURE REPEATED [None]
  - WOUND DEHISCENCE [None]
  - WOUND SECRETION [None]
